FAERS Safety Report 4682392-1 (Version None)
Quarter: 2005Q2

REPORT INFORMATION
  Report Type: 
  Country: None (occurrence: None)
  Receive Date: 20050602
  Receipt Date: 20050316
  Transmission Date: 20051028
  Serious: No
  Sender: FDA-Public Use
  Company Number: USA050393365

PATIENT
  Age: 51 Year
  Sex: Female

DRUGS (9)
  1. CYMBALTA [Suspect]
     Indication: DEPRESSION
     Dosage: 60 MG/1 IN THE MORNING
     Dates: start: 20040901
  2. EFFEXOR [Concomitant]
  3. ABILIFY [Concomitant]
  4. RESTORIL [Concomitant]
  5. THORAZINE [Concomitant]
  6. COGENTIN [Concomitant]
  7. PREVACID [Concomitant]
  8. URECHOLINE [Concomitant]
  9. DEXTROAMPHETAMINE (DEXAMFETAMINE) [Concomitant]

REACTIONS (3)
  - ACTIVATED PARTIAL THROMBOPLASTIN TIME PROLONGED [None]
  - CONTUSION [None]
  - WEIGHT DECREASED [None]
